FAERS Safety Report 4465924-8 (Version None)
Quarter: 2004Q4

REPORT INFORMATION
  Report Type: 
  Country: None (occurrence: None)
  Receive Date: 20041005
  Receipt Date: 20040923
  Transmission Date: 20050328
  Serious: Yes (Death)
  Sender: FDA-Public Use
  Company Number: US-JNJFOC-20040908276

PATIENT
  Age: 4 Month

DRUGS (2)
  1. PSEUDOEPHEDRINE HYDROCHLORIDE [Suspect]
     Indication: INTENTIONAL OVERDOSE
     Route: 049
  2. AMOXICILLIN [Suspect]
     Indication: INTENTIONAL OVERDOSE
     Route: 049

REACTIONS (3)
  - ASPIRATION [None]
  - CARDIO-RESPIRATORY ARREST [None]
  - VICTIM OF CRIME [None]
